FAERS Safety Report 20596005 (Version 2)
Quarter: 2022Q1

REPORT INFORMATION
  Report Type: Spontaneous
  Country: US (occurrence: None)
  Receive Date: 20220315
  Receipt Date: 20220316
  Transmission Date: 20220423
  Serious: No
  Sender: FDA-Public Use
  Company Number: US-ROCHE-2884408

PATIENT
  Sex: Female

DRUGS (3)
  1. XOLAIR [Suspect]
     Active Substance: OMALIZUMAB
     Indication: Product used for unknown indication
     Route: 065
  2. SOTALOL [Concomitant]
     Active Substance: SOTALOL
  3. AMLODIPINE [Concomitant]
     Active Substance: AMLODIPINE BESYLATE

REACTIONS (6)
  - Arthritis [Unknown]
  - Chills [Unknown]
  - Abdominal discomfort [Unknown]
  - Fatigue [Unknown]
  - Restlessness [Unknown]
  - Varicose vein [Unknown]
